FAERS Safety Report 8074128-1 (Version None)
Quarter: 2012Q1

REPORT INFORMATION
  Report Type: 
  Country: None (occurrence: None)
  Receive Date: 20120119
  Receipt Date: 20120116
  Transmission Date: 20120608
  Serious: Yes (Hospitalization)
  Sender: FDA-Public Use
  Company Number: 2012SP000598

PATIENT
  Age: 46 Year
  Sex: Female
  Weight: 79 kg

DRUGS (9)
  1. URSO 250 [Concomitant]
  2. INTERFERON [Suspect]
     Indication: HEPATITIS C
     Dosage: 3 MIU;QD;IV
     Route: 042
     Dates: start: 20110815, end: 20111010
  3. NORVASC [Concomitant]
  4. ROHYPNOL [Concomitant]
  5. OLMESARTAN MEDOXOMIL [Concomitant]
  6. LOXOPROFEN [Concomitant]
  7. REBETOL [Suspect]
     Indication: HEPATITIS C
     Dosage: 600 MG;QD;PO
     Route: 048
     Dates: start: 20110815, end: 20111011
  8. ABILIFY [Concomitant]
  9. MARZULENE-S [Concomitant]

REACTIONS (4)
  - PYREXIA [None]
  - CATHETER SITE ERYTHEMA [None]
  - CELLULITIS [None]
  - BACTERAEMIA [None]
